FAERS Safety Report 6996675-3 (Version None)
Quarter: 2010Q3

REPORT INFORMATION
  Report Type: 
  Country: None (occurrence: None)
  Receive Date: 20100918
  Receipt Date: 20090629
  Transmission Date: 20110219
  Serious: No
  Sender: FDA-Public Use
  Company Number: US-WYE-H09954409

PATIENT
  Sex: Female
  Weight: 68.1 kg

DRUGS (10)
  1. EFFEXOR XR [Suspect]
     Indication: DEPRESSION
     Route: 048
     Dates: start: 20040101, end: 20090517
  2. EFFEXOR XR [Suspect]
     Indication: FIBROMYALGIA
     Route: 048
     Dates: start: 20090518, end: 20090531
  3. EFFEXOR XR [Suspect]
     Dosage: HALF THE GRANULES IN THE CAPSULE DAILY
     Route: 048
     Dates: start: 20090601, end: 20090614
  4. EFFEXOR XR [Suspect]
     Dosage: THIRD OF THE GRANULES
     Route: 048
     Dates: start: 20090615, end: 20090623
  5. WELLBUTRIN [Concomitant]
  6. OMEPRAZOLE [Concomitant]
  7. ESTRADIOL [Concomitant]
  8. METHADONE [Concomitant]
  9. LEVOTHROID [Concomitant]
  10. LYRICA [Concomitant]

REACTIONS (3)
  - DRUG WITHDRAWAL SYNDROME [None]
  - PARAESTHESIA [None]
  - WRONG TECHNIQUE IN DRUG USAGE PROCESS [None]
